FAERS Safety Report 6552691-7 (Version None)
Quarter: 2010Q1

REPORT INFORMATION
  Report Type: 
  Country: None (occurrence: None)
  Receive Date: 20100126
  Receipt Date: 20100120
  Transmission Date: 20100710
  Serious: Yes (Death, Other)
  Sender: FDA-Public Use
  Company Number: JP-SANOFI-AVENTIS-2010SA004042

PATIENT
  Age: 60 Year

DRUGS (1)
  1. OXALIPLATIN [Suspect]
     Route: 065

REACTIONS (2)
  - NEUTROPHIL COUNT DECREASED [None]
  - TUMOUR HAEMORRHAGE [None]
